FAERS Safety Report 8386997-6 (Version None)
Quarter: 2012Q2

REPORT INFORMATION
  Report Type: 
  Country: None (occurrence: None)
  Receive Date: 20120522
  Receipt Date: 20120522
  Transmission Date: 20120825
  Serious: No
  Sender: FDA-Public Use
  Company Number: None

PATIENT
  Age: 73 Year
  Sex: Male

DRUGS (3)
  1. XOPENEX [Concomitant]
  2. ADVAIR DISKUS 250/50 [Suspect]
     Indication: CHRONIC OBSTRUCTIVE PULMONARY DISEASE
     Dosage: 1 INHALATION TWO TIMES A DAY BY MOUTH
     Route: 048
  3. SPRIVA HANDIHALER [Concomitant]

REACTIONS (3)
  - DYSPHONIA [None]
  - PRODUCT QUALITY ISSUE [None]
  - DYSPNOEA [None]
